FAERS Safety Report 20932460 (Version 1)
Quarter: 2022Q2

REPORT INFORMATION
  Report Type: Other
  Country: US (occurrence: None)
  Receive Date: 20220608
  Receipt Date: 20220608
  Transmission Date: 20220721
  Serious: No
  Sender: FDA-Public Use
  Company Number: US-ROCHE-2842793

PATIENT
  Age: 58 Year
  Sex: Female

DRUGS (9)
  1. TOCILIZUMAB [Suspect]
     Active Substance: TOCILIZUMAB
     Indication: COVID-19
     Dosage: ON POST OPERATIVE DAY 20
     Route: 065
  2. TACROLIMUS [Concomitant]
     Active Substance: TACROLIMUS
  3. MYCOPHENOLIC ACID [Concomitant]
     Active Substance: MYCOPHENOLIC ACID
  4. METHYLPREDNISOLONE [Concomitant]
     Active Substance: METHYLPREDNISOLONE
  5. VALGANCICLOVIR [Concomitant]
     Active Substance: VALGANCICLOVIR
  6. NYSTATIN [Concomitant]
     Active Substance: NYSTATIN
     Dosage: 500,000 UNIT AS NEEDED
  7. HYDROXYCHLOROQUINE [Concomitant]
     Active Substance: HYDROXYCHLOROQUINE
  8. PREDNISONE [Concomitant]
     Active Substance: PREDNISONE
     Route: 048
  9. SULFAMETHOXAZOLE\TRIMETHOPRIM [Concomitant]
     Active Substance: SULFAMETHOXAZOLE\TRIMETHOPRIM
     Dosage: ONCE EVERY OTHER DAY

REACTIONS (2)
  - Off label use [Unknown]
  - No adverse event [Unknown]
